FAERS Safety Report 5859408-X (Version None)
Quarter: 2008Q3

REPORT INFORMATION
  Report Type: 
  Country: None (occurrence: None)
  Receive Date: 20080827
  Receipt Date: 20080818
  Transmission Date: 20090109
  Serious: Yes (Hospitalization)
  Sender: FDA-Public Use
  Company Number: SE-AMGEN-US302632

PATIENT
  Sex: Female

DRUGS (10)
  1. ENBREL [Suspect]
     Indication: RHEUMATOID ARTHRITIS
     Route: 058
     Dates: start: 20041108, end: 20070604
  2. ACETYLCYSTEINE [Concomitant]
     Route: 065
  3. FOLACIN [Concomitant]
     Route: 065
  4. KALCIPOS [Concomitant]
     Route: 065
  5. PREDNISOLON [Concomitant]
     Route: 065
  6. DIDRONATE [Concomitant]
     Route: 065
  7. METHOTREXATE [Concomitant]
     Route: 065
  8. DEXOFEN [Concomitant]
     Route: 065
  9. NEXIUM [Concomitant]
     Route: 065
  10. DIAZEPAM [Concomitant]
     Route: 065

REACTIONS (3)
  - ABSCESS [None]
  - DIVERTICULITIS [None]
  - INTESTINAL FUNCTIONAL DISORDER [None]
